FAERS Safety Report 9540111 (Version 1)
Quarter: 2013Q3

REPORT INFORMATION
  Report Type: Report from Study
  Country: CA (occurrence: CA)
  Receive Date: 20130920
  Receipt Date: 20130920
  Transmission Date: 20140515
  Serious: Yes (Other)
  Sender: FDA-Public Use
  Company Number: CA-JNJFOC-20130908758

PATIENT
  Age: 51 Year
  Sex: Male
  Weight: 101.1 kg

DRUGS (3)
  1. REMICADE [Suspect]
     Indication: COLITIS ULCERATIVE
     Route: 042
     Dates: start: 20110210
  2. IMURAN [Concomitant]
     Route: 065
  3. SALOFALK [Concomitant]
     Route: 065

REACTIONS (1)
  - Rectal haemorrhage [Recovering/Resolving]
